FAERS Safety Report 17830483 (Version 5)
Quarter: 2020Q3

REPORT INFORMATION
  Report Type: Report from Study
  Country: CA (occurrence: CA)
  Receive Date: 20200527
  Receipt Date: 20200819
  Transmission Date: 20201102
  Serious: Yes (Hospitalization)
  Sender: FDA-Public Use
  Company Number: CA-BAYER-2020-093811

PATIENT
  Age: 55 Year
  Sex: Female

DRUGS (5)
  1. VITRAKVI [Suspect]
     Active Substance: LAROTRECTINIB
     Indication: COLON CANCER
     Dosage: 3 ML, BID
     Route: 048
  2. VITRAKVI [Suspect]
     Active Substance: LAROTRECTINIB
     Indication: COLON CANCER
     Dosage: DOSAGE MISTAKE (SHOULD BE TAKING 50 MG BID PO )
     Route: 048
     Dates: start: 20200515, end: 20200527
  3. VITRAKVI [Suspect]
     Active Substance: LAROTRECTINIB
     Indication: COLON CANCER
     Dosage: 2.5 ML, QD (EQUIVALENT OF 50MG DAILY)
     Route: 048
     Dates: end: 20200605
  4. VITRAKVI [Suspect]
     Active Substance: LAROTRECTINIB
     Indication: COLON CANCER
     Dosage: 30 MG, BID
     Route: 048
     Dates: end: 20200816
  5. VITRAKVI [Suspect]
     Active Substance: LAROTRECTINIB
     Indication: COLON CANCER
     Dosage: 100 MG, BID
     Route: 048
     Dates: start: 20200420

REACTIONS (9)
  - Incorrect dose administered [Recovering/Resolving]
  - Loss of consciousness [Recovered/Resolved]
  - Insomnia [Not Recovered/Not Resolved]
  - Panic reaction [None]
  - Delusion [Recovered/Resolved]
  - Product dose omission issue [None]
  - Confusional state [Recovered/Resolved]
  - Hepatic function abnormal [None]
  - Gait disturbance [None]

NARRATIVE: CASE EVENT DATE: 20200424
